FAERS Safety Report 9472120 (Version 2)
Quarter: 2013Q4

REPORT INFORMATION
  Report Type: Report from Study
  Country: CA (occurrence: CA)
  Receive Date: 20130823
  Receipt Date: 20131009
  Transmission Date: 20140711
  Serious: Yes (Other)
  Sender: FDA-Public Use
  Company Number: CA-ROCHE-1265577

PATIENT
  Age: 54 Year
  Sex: Female

DRUGS (13)
  1. RITUXAN [Suspect]
     Indication: RHEUMATOID ARTHRITIS
     Dosage: DAY 1, 15  ON 01/AUG/2012, PREVIOUS DOSE OF RITUXIMAB
     Route: 042
     Dates: start: 20120718
  2. DIPHENHYDRAMINE HCL [Concomitant]
     Route: 048
     Dates: start: 20120718
  3. ACETAMINOPHEN [Concomitant]
     Route: 048
     Dates: start: 20120718
  4. METHYLPREDNISOLONE [Concomitant]
     Route: 042
     Dates: start: 20120718
  5. ZOLOFT [Concomitant]
  6. METHOTREXATE [Concomitant]
  7. FOLIC ACID [Concomitant]
  8. AMITRIPTYLINE [Concomitant]
     Route: 065
  9. CELEBREX [Concomitant]
  10. TYLENOL [Concomitant]
  11. PREDNISONE [Concomitant]
  12. LYRICA [Concomitant]
  13. DEXILANT [Concomitant]

REACTIONS (1)
  - Breast cancer [Unknown]
